FAERS Safety Report 23346745 (Version 1)
Quarter: 2023Q4

REPORT INFORMATION
  Report Type: Spontaneous
  Country: EC (occurrence: EC)
  Receive Date: 20231228
  Receipt Date: 20231228
  Transmission Date: 20240110
  Serious: Yes (Other)
  Sender: FDA-Public Use
  Company Number: EC-PFIZER INC-PV202300023774

PATIENT
  Age: 58 Year
  Sex: Female

DRUGS (1)
  1. SUTENT [Suspect]
     Active Substance: SUNITINIB MALATE
     Dosage: DAILY FOR 2 WEEKS AND 2 WEEKS OF REST
     Route: 048

REACTIONS (13)
  - Second primary malignancy [Not Recovered/Not Resolved]
  - Yellow skin [Not Recovered/Not Resolved]
  - Taste disorder [Not Recovered/Not Resolved]
  - Somnolence [Not Recovered/Not Resolved]
  - Initial insomnia [Not Recovered/Not Resolved]
  - Blister [Recovering/Resolving]
  - Osteopenia [Not Recovered/Not Resolved]
  - Bone pain [Unknown]
  - Lung disorder [Not Recovered/Not Resolved]
  - Dyspnoea [Not Recovered/Not Resolved]
  - Pruritus [Not Recovered/Not Resolved]
  - Dizziness [Not Recovered/Not Resolved]
  - Off label use [Unknown]

NARRATIVE: CASE EVENT DATE: 20230218
